FAERS Safety Report 9440563 (Version 1)
Quarter: 2013Q3

REPORT INFORMATION
  Report Type: Spontaneous
  Country: US (occurrence: US)
  Receive Date: 20130805
  Receipt Date: 20130805
  Transmission Date: 20140515
  Serious: Yes (Other)
  Sender: FDA-Public Use
  Company Number: US-PFIZER INC-2013226562

PATIENT
  Age: 42 Year
  Sex: Male
  Weight: 67.12 kg

DRUGS (4)
  1. LYRICA [Suspect]
     Indication: NEURALGIA
     Dosage: UNK
     Route: 048
     Dates: start: 2011, end: 2013
  2. IBUPROFEN [Concomitant]
     Indication: PAIN
     Dosage: 400 MG, AS NEEDED
  3. MORPHINE [Concomitant]
     Dosage: UNK
  4. HYDROCODONE [Concomitant]
     Dosage: UNK

REACTIONS (18)
  - Hemiparesis [Unknown]
  - Road traffic accident [Unknown]
  - Swelling face [Not Recovered/Not Resolved]
  - Lip swelling [Not Recovered/Not Resolved]
  - Lip injury [Unknown]
  - Loss of consciousness [Unknown]
  - Weight decreased [Unknown]
  - Skin papilloma [Unknown]
  - Foot deformity [Not Recovered/Not Resolved]
  - Convulsion [Unknown]
  - Impaired driving ability [Unknown]
  - Blood count abnormal [Unknown]
  - Varicella [Unknown]
  - Rash [Unknown]
  - Drooling [Unknown]
  - Salivary hypersecretion [Unknown]
  - Urticaria [Unknown]
  - Dizziness [Unknown]
